FAERS Safety Report 24317613 (Version 1)
Quarter: 2024Q3

REPORT INFORMATION
  Report Type: Report from Study
  Country: GB (occurrence: GB)
  Receive Date: 20240913
  Receipt Date: 20240913
  Transmission Date: 20241016
  Serious: Yes (Other)
  Sender: UCB
  Company Number: GB-UCBSA-2024040674

PATIENT
  Sex: Male

DRUGS (1)
  1. CERTOLIZUMAB PEGOL [Suspect]
     Active Substance: CERTOLIZUMAB PEGOL
     Indication: Spinal osteoarthritis
     Dosage: 200 MILLIGRAM, EV 2 WEEKS(QOW)
     Route: 058

REACTIONS (6)
  - Gastrointestinal carcinoma [Unknown]
  - Musculoskeletal stiffness [Unknown]
  - Urinary tract infection [Unknown]
  - Liver function test increased [Unknown]
  - Infection [Unknown]
  - Product use in unapproved indication [Unknown]
